FAERS Safety Report 4949590-0 (Version None)
Quarter: 2006Q1

REPORT INFORMATION
  Report Type: 
  Country: None (occurrence: None)
  Receive Date: 20060315
  Receipt Date: 20060302
  Transmission Date: 20060701
  Serious: Yes (Death, Other)
  Sender: FDA-Public Use
  Company Number: US200603000909

PATIENT
  Age: 45 Year
  Sex: Male
  Weight: 108.8 kg

DRUGS (1)
  1. ZYPREXA [Suspect]
     Indication: SCHIZOPHRENIA
     Dates: start: 20011001, end: 20030101

REACTIONS (2)
  - PANCREATITIS [None]
  - WEIGHT INCREASED [None]
